FAERS Safety Report 7457354-1 (Version None)
Quarter: 2011Q2

REPORT INFORMATION
  Report Type: 
  Country: None (occurrence: None)
  Receive Date: 20110504
  Receipt Date: 20110429
  Transmission Date: 20111010
  Serious: Yes (Death, Other)
  Sender: FDA-Public Use
  Company Number: US-AMGEN-USASP2011020319

PATIENT
  Age: 92 Year
  Sex: Male
  Weight: 44 kg

DRUGS (1)
  1. NPLATE [Suspect]
     Indication: IDIOPATHIC THROMBOCYTOPENIC PURPURA
     Dosage: 315 A?G, UNK
     Dates: start: 20101107, end: 20110125

REACTIONS (5)
  - DISEASE PROGRESSION [None]
  - GENERAL PHYSICAL HEALTH DETERIORATION [None]
  - ABASIA [None]
  - ILIOTIBIAL BAND SYNDROME [None]
  - BONE MARROW DISORDER [None]
